FAERS Safety Report 4543741-8 (Version None)
Quarter: 2004Q4

REPORT INFORMATION
  Report Type: 
  Country: None (occurrence: None)
  Receive Date: 20041223
  Receipt Date: 20040914
  Transmission Date: 20050328
  Serious: No
  Sender: FDA-Public Use
  Company Number: US-JNJFOC-20040905048

PATIENT
  Age: 31 Year
  Sex: Female
  Weight: 52.1637 kg

DRUGS (5)
  1. ORTHO EVRA [Suspect]
     Indication: CONTRACEPTION
     Dosage: 1 DOSE(S), 3 IN 4 WEEK, TRANSDERMAL
     Route: 062
     Dates: start: 20040711
  2. ORTHO EVRA [Suspect]
     Indication: OVARIAN CYST
     Dosage: 1 DOSE(S), 3 IN 4 WEEK, TRANSDERMAL
     Route: 062
     Dates: start: 20040711
  3. MULTIVITAMIN [Concomitant]
  4. CRANBERRY PILL (GENERAL NUTRIENTS) [Concomitant]
  5. ACIDOPHYLLIS (LACTOBACILLUS ACIDOPHILUS) [Concomitant]

REACTIONS (2)
  - ABDOMINAL PAIN [None]
  - INFREQUENT BOWEL MOVEMENTS [None]
